FAERS Safety Report 7565567-3 (Version None)
Quarter: 2011Q2

REPORT INFORMATION
  Report Type: 
  Country: None (occurrence: None)
  Receive Date: 20110615
  Receipt Date: 20110602
  Transmission Date: 20111010
  Serious: Yes (Other)
  Sender: FDA-Public Use
  Company Number: 2011MA006323

PATIENT
  Age: 3 Year
  Sex: Male

DRUGS (1)
  1. CARBAMAZEPINE [Suspect]
     Indication: EPILEPSY
     Dosage: 20 MG/KG;OD

REACTIONS (7)
  - EMOTIONAL DISORDER [None]
  - CONDITION AGGRAVATED [None]
  - NERVOUS SYSTEM DISORDER [None]
  - DYSTONIA [None]
  - BRAIN STEM SYNDROME [None]
  - EPILEPSY [None]
  - ENCEPHALOPATHY [None]
